FAERS Safety Report 6099612-1 (Version None)
Quarter: 2009Q1

REPORT INFORMATION
  Report Type: 
  Country: None (occurrence: None)
  Receive Date: 20090303
  Receipt Date: 20090217
  Transmission Date: 20090719
  Serious: Yes (Hospitalization)
  Sender: FDA-Public Use
  Company Number: JP-NOVOPROD-281411

PATIENT
  Age: 62 Year
  Sex: Male
  Weight: 58 kg

DRUGS (7)
  1. NOVORAPID CHU FLEXPEN [Suspect]
     Indication: DIABETES MELLITUS
     Dosage: 6-4-4
     Route: 058
     Dates: start: 20080319, end: 20080322
  2. NOVORAPID CHU FLEXPEN [Suspect]
     Dosage: 26 (10-8-8) IU, QD
     Route: 058
     Dates: start: 20080323, end: 20080325
  3. NOVORAPID CHU FLEXPEN [Suspect]
     Dosage: 14-10-8 IU QD
     Route: 058
     Dates: start: 20080326, end: 20080403
  4. NOVORAPID CHU FLEXPEN [Suspect]
     Dosage: 17-11-10 IU, QD
     Route: 058
     Dates: start: 20080404, end: 20080422
  5. NOVORAPID CHU FLEXPEN [Suspect]
     Dosage: 15-7-4 IU, QD
     Route: 058
     Dates: start: 20080423
  6. AMARYL [Concomitant]
     Indication: DIABETES MELLITUS
     Dates: end: 20080319
  7. MELBIN                             /00082702/ [Concomitant]
     Indication: DIABETES MELLITUS
     Dates: end: 20080319

REACTIONS (5)
  - ASCITES [None]
  - OEDEMA [None]
  - PERICARDIAL EFFUSION [None]
  - PLEURAL EFFUSION [None]
  - WEIGHT INCREASED [None]
